FAERS Safety Report 9342276 (Version 6)
Quarter: 2013Q4

REPORT INFORMATION
  Report Type: Report from Study
  Country: DE (occurrence: DE)
  Receive Date: 20130611
  Receipt Date: 20131218
  Transmission Date: 20140711
  Serious: Yes (Hospitalization)
  Sender: FDA-Public Use
  Company Number: DE-PFIZER INC-2013169494

PATIENT
  Age: 60 Year
  Sex: Female
  Weight: 57.1 kg

DRUGS (5)
  1. TOFACITINIB CITRATE [Suspect]
     Indication: RHEUMATOID ARTHRITIS
     Dosage: 10 MG, 2X/DAY
     Dates: start: 20100607, end: 20130325
  2. PREDNISOLON [Concomitant]
     Indication: RHEUMATOID ARTHRITIS
     Dosage: 5 MG, 1X/DAY
     Route: 048
     Dates: start: 20080319, end: 20130325
  3. RISEDRONATE [Concomitant]
     Indication: OSTEOPOROSIS
     Dosage: 35 MG, WEEKLY
     Route: 048
     Dates: start: 20081021, end: 20130325
  4. CALCIUM [Concomitant]
     Indication: OSTEOPOROSIS
     Dosage: 1000 MG, 1X/DAY
     Route: 048
     Dates: start: 20081021, end: 20130325
  5. VITAMIN D3 [Concomitant]
     Indication: OSTEOPOROSIS
     Dosage: 880 IU, 1X/DAY
     Route: 048
     Dates: start: 20081021, end: 20130325

REACTIONS (1)
  - Breast cancer female [Not Recovered/Not Resolved]
